FAERS Safety Report 23286115 (Version 1)
Quarter: 2023Q4

REPORT INFORMATION
  Report Type: Spontaneous
  Country: JP (occurrence: JP)
  Receive Date: 20231212
  Receipt Date: 20231212
  Transmission Date: 20240109
  Serious: Yes (Hospitalization, Other)
  Sender: FDA-Public Use
  Company Number: JP-ONO-2023JP030173

PATIENT

DRUGS (8)
  1. OPDIVO [Suspect]
     Active Substance: NIVOLUMAB
     Indication: Oesophageal carcinoma
     Dosage: UNK
     Route: 041
     Dates: start: 20220905
  2. OPDIVO [Suspect]
     Active Substance: NIVOLUMAB
     Dosage: UNK, EVERY 2 TO 3 WEEKS
     Route: 041
  3. OPDIVO [Suspect]
     Active Substance: NIVOLUMAB
     Dosage: UNK
     Route: 041
  4. OPDIVO [Suspect]
     Active Substance: NIVOLUMAB
     Dosage: UNK
     Route: 041
     Dates: start: 202310
  5. FLUOROURACIL [Concomitant]
     Active Substance: FLUOROURACIL
     Indication: Oesophageal carcinoma
     Dosage: UNK
     Dates: start: 20220905
  6. FLUOROURACIL [Concomitant]
     Active Substance: FLUOROURACIL
     Dosage: UNK
  7. CISPLATIN [Concomitant]
     Active Substance: CISPLATIN
     Indication: Oesophageal carcinoma
     Dosage: UNK
     Dates: start: 20220905
  8. CISPLATIN [Concomitant]
     Active Substance: CISPLATIN
     Dosage: UNK

REACTIONS (2)
  - Pneumonia [Recovered/Resolved]
  - Adrenal insufficiency [Unknown]

NARRATIVE: CASE EVENT DATE: 20230921
